FAERS Safety Report 7334538-4 (Version None)
Quarter: 2011Q1

REPORT INFORMATION
  Report Type: 
  Country: None (occurrence: None)
  Receive Date: 20110307
  Receipt Date: 20110210
  Transmission Date: 20110831
  Serious: No
  Sender: FDA-Public Use
  Company Number: US-KINGPHARMUSA00001-K201100167

PATIENT
  Age: 61 Year
  Sex: Female

DRUGS (3)
  1. EMBEDA [Suspect]
     Indication: PAIN
     Dosage: 30 MG, Q12H
     Route: 048
     Dates: start: 20100101, end: 20110201
  2. HYDROCODONE BITARTRATE [Concomitant]
     Indication: BREAKTHROUGH PAIN
     Dosage: 10 MG-3 TABS DAILY
  3. EMBEDA [Suspect]
     Dosage: 30 MG, QD
     Route: 048
     Dates: start: 20110201

REACTIONS (5)
  - URINE ODOUR ABNORMAL [None]
  - CATARACT [None]
  - VISION BLURRED [None]
  - CYSTITIS [None]
  - CHROMATURIA [None]
